FAERS Safety Report 5441262-1 (Version None)
Quarter: 2007Q3

REPORT INFORMATION
  Report Type: 
  Country: None (occurrence: None)
  Receive Date: 20070901
  Receipt Date: 20070820
  Transmission Date: 20080115
  Serious: Yes (Other)
  Sender: FDA-Public Use
  Company Number: US-PFIZER INC-2007071311

PATIENT
  Age: 9 Month
  Sex: Male

DRUGS (4)
  1. DILANTIN [Suspect]
  2. DEPAKOTE [Suspect]
  3. PRIMIDONE [Suspect]
  4. PHENOBARBITAL TAB [Suspect]

REACTIONS (2)
  - CONVULSION [None]
  - DRUG INEFFECTIVE [None]
